FAERS Safety Report 7122650-4 (Version None)
Quarter: 2010Q4

REPORT INFORMATION
  Report Type: 
  Country: None (occurrence: None)
  Receive Date: 20101124
  Receipt Date: 20101118
  Transmission Date: 20110411
  Serious: Yes (Death, Hospitalization)
  Sender: FDA-Public Use
  Company Number: FR-ALEXION-A201000712

PATIENT

DRUGS (7)
  1. SOLIRIS [Suspect]
     Indication: PAROXYSMAL NOCTURNAL HAEMOGLOBINURIA
     Dosage: 600 MG, QW
     Route: 042
     Dates: start: 20070727, end: 20070817
  2. SOLIRIS [Suspect]
     Dosage: 900 MG, Q2W
     Route: 042
     Dates: start: 20070824, end: 20100521
  3. DURAGESIC-100 [Concomitant]
  4. SOLUPRED                           /00016209/ [Concomitant]
  5. MOPRAL                             /00661201/ [Concomitant]
  6. ZOCOR [Concomitant]
  7. DEROXAT [Concomitant]

REACTIONS (1)
  - PULMONARY EMBOLISM [None]
